FAERS Safety Report 10120362 (Version 1)
Quarter: 2014Q2

REPORT INFORMATION
  Report Type: Spontaneous
  Country: FR (occurrence: FR)
  Receive Date: 20140425
  Receipt Date: 20140425
  Transmission Date: 20141212
  Serious: Yes (Hospitalization)
  Sender: FDA-Public Use
  Company Number: FR-JNJFOC-20140416089

PATIENT
  Age: 59 Year
  Sex: Female

DRUGS (6)
  1. ZALDIAR [Suspect]
     Indication: PRODUCT USED FOR UNKNOWN INDICATION
     Route: 048
     Dates: end: 20140130
  2. LAMOTRIGINE [Concomitant]
     Route: 048
  3. TEVETENS [Concomitant]
     Route: 048
  4. TARDYFERON [Concomitant]
     Route: 048
  5. METFORMINE [Concomitant]
     Route: 048
  6. LEVOTHYROX [Concomitant]
     Route: 048

REACTIONS (4)
  - Psychomotor retardation [Recovered/Resolved]
  - Gamma-glutamyltransferase increased [Recovering/Resolving]
  - Alanine aminotransferase increased [Recovering/Resolving]
  - Aspartate aminotransferase increased [Recovered/Resolved]
